FAERS Safety Report 16822411 (Version 1)
Quarter: 2019Q3

REPORT INFORMATION
  Report Type: Spontaneous
  Country: JP (occurrence: JP)
  Receive Date: 20190918
  Receipt Date: 20190918
  Transmission Date: 20191005
  Serious: Yes (Life-Threatening, Hospitalization, Other)
  Sender: FDA-Public Use
  Company Number: JP-STRIDES ARCOLAB LIMITED-2019SP008890

PATIENT
  Age: 56 Year
  Sex: Female
  Weight: 29 kg

DRUGS (1)
  1. IBUPROFEN. [Suspect]
     Active Substance: IBUPROFEN
     Indication: HEADACHE
     Dosage: UNK
     Route: 065

REACTIONS (17)
  - Hyperkalaemia [Recovered/Resolved]
  - Reye^s syndrome [Recovered/Resolved]
  - Hypolipidaemia [Recovered/Resolved]
  - Muscle atrophy [Recovered/Resolved]
  - Malnutrition [Recovered/Resolved]
  - Hyperammonaemia [Recovered/Resolved]
  - Hyperbilirubinaemia [Recovered/Resolved]
  - Respiratory failure [Recovered/Resolved]
  - Hypoglycaemia [Recovered/Resolved]
  - Transaminases increased [Recovered/Resolved]
  - Hypercreatinaemia [Recovered/Resolved]
  - Hyponatraemia [Recovered/Resolved]
  - Altered state of consciousness [Recovered/Resolved]
  - Decreased appetite [Recovered/Resolved]
  - Azotaemia [Recovered/Resolved]
  - Lactic acidosis [Recovered/Resolved]
  - Hepatomegaly [Recovered/Resolved]
